FAERS Safety Report 10229470 (Version 2)
Quarter: 2014Q3

REPORT INFORMATION
  Report Type: Spontaneous
  Country: US (occurrence: None)
  Receive Date: 20140609
  Receipt Date: 20140723
  Transmission Date: 20150326
  Serious: Yes (Death, Hospitalization)
  Sender: FDA-Public Use
  Company Number: IMP_07638_2014

PATIENT
  Age: 78 Year
  Sex: Female

DRUGS (11)
  1. NATEGLINIDE. [Concomitant]
     Active Substance: NATEGLINIDE
  2. INDAPAMIDE. [Concomitant]
     Active Substance: INDAPAMIDE
  3. METFORMIN [Suspect]
     Active Substance: METFORMIN HYDROCHLORIDE
     Indication: PRODUCT USED FOR UNKNOWN INDICATION
     Route: 048
  4. GLIMEPIRIDE. [Concomitant]
     Active Substance: GLIMEPIRIDE
  5. FUROSEMIDE. [Concomitant]
     Active Substance: FUROSEMIDE
  6. ZOLEDRONIC ACID [Suspect]
     Active Substance: ZOLEDRONIC ACID
     Indication: OSTEOPOROSIS
     Dosage: INFUSION ( FERQUENCY UNSPECIFIED)
     Route: 048
  7. ROSUVASTATIN [Concomitant]
     Active Substance: ROSUVASTATIN
  8. RISEDRONATE [Concomitant]
     Active Substance: RISEDRONATE SODIUM
  9. AMLODIPINE [Concomitant]
     Active Substance: AMLODIPINE BESYLATE
  10. METOPROLOL [Concomitant]
     Active Substance: METOPROLOL
  11. ERGOCALCIFEROL. [Concomitant]
     Active Substance: ERGOCALCIFEROL

REACTIONS (10)
  - Lactic acidosis [None]
  - Anion gap increased [None]
  - Renal failure acute [None]
  - Feeling cold [None]
  - Metabolic acidosis [None]
  - Blood pressure decreased [None]
  - Dry skin [None]
  - Blood potassium increased [None]
  - Nephropathy toxic [None]
  - Unresponsive to stimuli [None]
